FAERS Safety Report 6287247-7 (Version None)
Quarter: 2009Q3

REPORT INFORMATION
  Report Type: 
  Country: None (occurrence: None)
  Receive Date: 20090728
  Receipt Date: 20090618
  Transmission Date: 20100115
  Serious: Yes (Hospitalization, Other)
  Sender: FDA-Public Use
  Company Number: PHHY2009CA30114

PATIENT
  Sex: Male

DRUGS (2)
  1. CARBAMAZEPINE [Suspect]
     Dosage: MATERNAL DOSE WAS 300 MG, BID
     Route: 064
  2. VENLAFAXINE HYDROCHLORIDE [Suspect]
     Dosage: MATERNAL DOSE WAS 75 MG/DAY
     Route: 064

REACTIONS (5)
  - DRUG EXPOSURE DURING PREGNANCY [None]
  - IRRITABILITY [None]
  - NEONATAL TACHYPNOEA [None]
  - PREMATURE BABY [None]
  - TREMOR NEONATAL [None]
